FAERS Safety Report 5379264-6 (Version None)
Quarter: 2007Q3

REPORT INFORMATION
  Report Type: 
  Country: None (occurrence: None)
  Receive Date: 20070705
  Receipt Date: 20070626
  Transmission Date: 20080115
  Serious: Yes (Other)
  Sender: FDA-Public Use
  Company Number: US-PFIZER INC-2007036532

PATIENT
  Sex: Female
  Weight: 61.7 kg

DRUGS (16)
  1. CHANTIX [Suspect]
     Indication: SMOKING CESSATION THERAPY
     Dates: start: 20070418
  2. CARBAMAZEPINE [Concomitant]
  3. TRAMADOL HCL [Concomitant]
  4. TOPAMAX [Concomitant]
  5. ZOLOFT [Concomitant]
  6. CITALOPRAM HYDROBROMIDE [Concomitant]
  7. CLONAZEPAM [Concomitant]
  8. ANASTROZOLE [Concomitant]
  9. FLEXERIL [Concomitant]
  10. NEXIUM [Concomitant]
  11. ALL OTHER THERAPEUTIC PRODUCTS [Concomitant]
  12. LIPITOR [Concomitant]
  13. DOCUSATE [Concomitant]
  14. CLONIDINE [Concomitant]
  15. CLINDAMYCIN HCL [Concomitant]
  16. KLONOPIN [Concomitant]

REACTIONS (5)
  - ABNORMAL DREAMS [None]
  - FLATULENCE [None]
  - IMPAIRED GASTRIC EMPTYING [None]
  - MEDICATION ERROR [None]
  - WEIGHT DECREASED [None]
